FAERS Safety Report 24526218 (Version 1)
Quarter: 2024Q4

REPORT INFORMATION
  Report Type: Spontaneous
  Country: US (occurrence: US)
  Receive Date: 20241021
  Receipt Date: 20241021
  Transmission Date: 20250115
  Serious: Yes (Hospitalization)
  Sender: AMGEN
  Company Number: US-AMGEN-USASP2024200253

PATIENT
  Sex: Male
  Weight: 168.4 kg

DRUGS (2)
  1. KYPROLIS [Suspect]
     Active Substance: CARFILZOMIB
     Indication: Plasma cell myeloma
     Dosage: 45 MILLIGRAM (ONE VIAL OF KYPROLIS 60 MG.)
     Route: 065
  2. KYPROLIS [Suspect]
     Active Substance: CARFILZOMIB
     Dosage: UNK (THE PATIENT DID RESUME TREATMENT)
     Route: 065
     Dates: start: 20241005

REACTIONS (1)
  - Heart rate decreased [Unknown]
